FAERS Safety Report 8704829 (Version 2)
Quarter: 2013Q4

REPORT INFORMATION
  Report Type: Spontaneous
  Country: US (occurrence: US)
  Receive Date: 20120803
  Receipt Date: 20131105
  Transmission Date: 20140711
  Serious: Yes (Other)
  Sender: FDA-Public Use
  Company Number: US-009507513-1207USA010995

PATIENT
  Age: 66 Year
  Sex: Female

DRUGS (3)
  1. ZOCOR [Suspect]
     Dosage: 10 MG, UNK
     Route: 048
  2. PRAVASTATIN SODIUM [Suspect]
     Dosage: 10 MG, UNK
  3. LIPITOR [Concomitant]

REACTIONS (3)
  - Arthralgia [Unknown]
  - Osteoarthritis [Unknown]
  - Muscular weakness [Unknown]
